FAERS Safety Report 20189892 (Version 1)
Quarter: 2021Q4

REPORT INFORMATION
  Report Type: Report from Study
  Country: US (occurrence: None)
  Receive Date: 20211215
  Receipt Date: 20211215
  Transmission Date: 20220303
  Serious: Yes (Other)
  Sender: FDA-Public Use
  Company Number: US-Eisai Medical Research-EC-2021-104855

PATIENT
  Age: 81 Year
  Sex: Male
  Weight: 110.2 kg

DRUGS (8)
  1. LENVIMA [Suspect]
     Active Substance: LENVATINIB
     Indication: Thyroid cancer metastatic
     Route: 048
     Dates: start: 20211002, end: 2021
  2. B12 ACTIVE [Concomitant]
  3. ATORVASTATIN CALCIUM [Concomitant]
     Active Substance: ATORVASTATIN CALCIUM
  4. LEVOTHYROXINE [Concomitant]
     Active Substance: LEVOTHYROXINE
  5. THERA M PLUS [Concomitant]
  6. OYSTERCAL-D [Concomitant]
  7. METOPROLOL SUCCINATE [Concomitant]
     Active Substance: METOPROLOL SUCCINATE
  8. ASPIRIN [Concomitant]
     Active Substance: ASPIRIN

REACTIONS (1)
  - Hepatic failure [Recovering/Resolving]

NARRATIVE: CASE EVENT DATE: 20210101
